FAERS Safety Report 9578784 (Version 1)
Quarter: 2013Q4

REPORT INFORMATION
  Report Type: Spontaneous
  Country: US (occurrence: US)
  Receive Date: 20131001
  Receipt Date: 20131001
  Transmission Date: 20140711
  Serious: No
  Sender: FDA-Public Use
  Company Number: US-AMGEN-USASP2013014737

PATIENT
  Sex: Male
  Weight: 124.72 kg

DRUGS (7)
  1. ENBREL [Suspect]
     Indication: PSORIASIS
     Dosage: 50 MG, QWK
     Route: 058
  2. LIPITOR [Concomitant]
     Dosage: 80 MG, UNK
  3. DILANTIN                           /00017401/ [Concomitant]
     Dosage: 30 MG, UNK
  4. PHENOBARB                          /00023201/ [Concomitant]
     Dosage: 16.2 MG, UNK
  5. LEVOTHYROXIN [Concomitant]
     Dosage: 100 MUG, UNK
  6. LISINOPRIL [Concomitant]
     Dosage: 5 MG, UNK
  7. METOPROLOL [Concomitant]
     Dosage: 200 MG, UNK

REACTIONS (1)
  - Drug ineffective [Unknown]
